FAERS Safety Report 22595228 (Version 1)
Quarter: 2023Q2

REPORT INFORMATION
  Report Type: Spontaneous
  Country: US (occurrence: None)
  Receive Date: 20230612
  Receipt Date: 20230612
  Transmission Date: 20230721
  Serious: Yes (Other)
  Sender: FDA-Public Use
  Company Number: None

PATIENT
  Age: 63 Year
  Sex: Male

DRUGS (3)
  1. HUMIRA [Suspect]
     Active Substance: ADALIMUMAB
     Indication: Rheumatoid arthritis
     Dosage: 40MG/0.4ML SUBCUTANEOS??INJECT 1 PEN (40MG) UNDER THE SKIN (SUBCUTANEOUS INJECTION) EVERY 2 WEEKS IN
     Route: 058
     Dates: start: 20191127
  2. HUMIRA [Suspect]
     Active Substance: ADALIMUMAB
     Dosage: OTHER QUANTITY : 1 PEN (40 MG);?FREQUENCY : EVERY OTHER WEEK;?
     Route: 058
  3. DEXAMETH PHO INJ [Concomitant]

REACTIONS (1)
  - Hip surgery [None]

NARRATIVE: CASE EVENT DATE: 20230427
